FAERS Safety Report 6283971-0 (Version None)
Quarter: 2009Q3

REPORT INFORMATION
  Report Type: 
  Country: None (occurrence: None)
  Receive Date: 20090722
  Receipt Date: 20090709
  Transmission Date: 20100115
  Serious: No
  Sender: FDA-Public Use
  Company Number: 2009-200332-NL

PATIENT
  Age: 71 Year
  Sex: Female

DRUGS (1)
  1. MIRTAZAPINE [Suspect]
     Dosage: 30 MG

REACTIONS (4)
  - EMOTIONAL DISORDER [None]
  - SKIN BURNING SENSATION [None]
  - VISUAL ACUITY REDUCED [None]
  - WEIGHT INCREASED [None]
